FAERS Safety Report 26113951 (Version 1)
Quarter: 2025Q4

REPORT INFORMATION
  Report Type: Report from Study
  Country: JP (occurrence: JP)
  Receive Date: 20251202
  Receipt Date: 20251202
  Transmission Date: 20260118
  Serious: Yes (Other)
  Sender: SANOFI AVENTIS
  Company Number: JP-DialogSolutions-SAAVPROD-PI846103-C4

PATIENT

DRUGS (1)
  1. DOCETAXEL [Suspect]
     Active Substance: DOCETAXEL
     Indication: Non-small cell lung cancer stage III
     Dosage: 60 MG/M2, QCY, FOR 1 HOUR EVERY 3 TO 4 WEEKS FOR THREE CYCLES
     Route: 042

REACTIONS (2)
  - Gastric ulcer [Unknown]
  - Toxicity to various agents [Unknown]
